FAERS Safety Report 25123765 (Version 2)
Quarter: 2025Q2

REPORT INFORMATION
  Report Type: Spontaneous
  Country: BE (occurrence: BE)
  Receive Date: 20250326
  Receipt Date: 20250410
  Transmission Date: 20250716
  Serious: Yes (Other)
  Sender: REGENERON
  Company Number: NL-BAYER-2025A039951

PATIENT
  Sex: Male

DRUGS (2)
  1. EYLEA [Suspect]
     Active Substance: AFLIBERCEPT
     Indication: Neovascular age-related macular degeneration
     Route: 031
  2. EYLEA [Suspect]
     Active Substance: AFLIBERCEPT
     Route: 031

REACTIONS (5)
  - Blindness unilateral [Recovered/Resolved]
  - Retinal pigment epithelial tear [Recovering/Resolving]
  - Visual impairment [Unknown]
  - Visual acuity reduced [Recovering/Resolving]
  - Visual field defect [Unknown]
